FAERS Safety Report 8324673-6 (Version None)
Quarter: 2012Q1

REPORT INFORMATION
  Report Type: 
  Country: None (occurrence: None)
  Receive Date: 20120315
  Receipt Date: 20110418
  Transmission Date: 20120608
  Serious: No
  Sender: FDA-Public Use
  Company Number: PHHY2011US19393

PATIENT
  Age: 49 Year
  Sex: Female

DRUGS (11)
  1. MIGRAINEX (CAFFEINE, PARACETAMIL, PHENYLEPHRINE HYDROCHLORIDE) [Concomitant]
  2. LIORESAL [Concomitant]
  3. DETROL (TOLTRODINE L-TARTRATE) [Concomitant]
  4. ANAPRAN (NAPROXEN SODIUM) [Concomitant]
  5. WELLBUTRIN [Concomitant]
  6. AMPYRA [Concomitant]
  7. GILENYA [Suspect]
     Indication: MULTIPLE SCLEROSIS
     Dosage: 0.5 MG, QD, ORAL
     Route: 048
     Dates: start: 20110405
  8. ACIDOPHILUS ^ZYMUS^ (LACTOBACILLUS ACIDOPHILUS) [Concomitant]
  9. PROVIGIL [Concomitant]
  10. TOPAMAX [Concomitant]
  11. PEMEREMON [Concomitant]

REACTIONS (5)
  - PARAESTHESIA [None]
  - URINE COLOUR ABNORMAL [None]
  - CHEST DISCOMFORT [None]
  - HYPOAESTHESIA [None]
  - PAIN [None]
